FAERS Safety Report 19776608 (Version 1)
Quarter: 2021Q3

REPORT INFORMATION
  Report Type: Spontaneous
  Country: NL (occurrence: NL)
  Receive Date: 20210902
  Receipt Date: 20210902
  Transmission Date: 20211014
  Serious: Yes (Other)
  Sender: FDA-Public Use
  Company Number: NL-TEVA-2021-NL-1948061

PATIENT

DRUGS (1)
  1. LOSARTAN TABLETTEN TEVA [Suspect]
     Active Substance: LOSARTAN POTASSIUM
     Indication: PRODUCT USED FOR UNKNOWN INDICATION
     Route: 065

REACTIONS (2)
  - Product complaint [Unknown]
  - Renal cancer [Unknown]

NARRATIVE: CASE EVENT DATE: 2021
